FAERS Safety Report 10496453 (Version 1)
Quarter: 2014Q4

REPORT INFORMATION
  Report Type: Spontaneous
  Country: DE (occurrence: DE)
  Receive Date: 20141004
  Receipt Date: 20141004
  Transmission Date: 20150528
  Serious: Yes (Death, Congenital Anomaly, Other)
  Sender: FDA-Public Use
  Company Number: DE-ACCORD-026112

PATIENT
  Age: 0 Year
  Sex: Male
  Weight: 2.4 kg

DRUGS (1)
  1. LEVETIRACETAM. [Suspect]
     Active Substance: LEVETIRACETAM
     Dosage: TRANSFER OF PATERNAL DRUGS TO THE EMBRYO?VIA SEMINAL FLUIDS
     Route: 050

REACTIONS (3)
  - Exposure via father [Unknown]
  - Stillbirth [Fatal]
  - Congenital hydrocephalus [Fatal]
